FAERS Safety Report 10392923 (Version 1)
Quarter: 2014Q3

REPORT INFORMATION
  Report Type: Spontaneous
  Country: US (occurrence: US)
  Receive Date: 20140819
  Receipt Date: 20140819
  Transmission Date: 20150326
  Serious: Yes (Other)
  Sender: FDA-Public Use
  Company Number: PHHY2014US096976

PATIENT

DRUGS (7)
  1. BUSPIRONE [Suspect]
     Active Substance: BUSPIRONE HYDROCHLORIDE
     Route: 064
  2. MORPHINE [Suspect]
     Active Substance: MORPHINE
     Route: 064
  3. LORAZEPAM. [Suspect]
     Active Substance: LORAZEPAM
     Route: 064
  4. FENTANYL. [Suspect]
     Active Substance: FENTANYL
     Route: 064
  5. OXYTOCIN. [Suspect]
     Active Substance: OXYTOCIN
     Route: 064
  6. MAGNESIUM [Suspect]
     Active Substance: MAGNESIUM
     Route: 064
  7. BUPIVACAINE [Suspect]
     Active Substance: BUPIVACAINE
     Dosage: UNK
     Route: 064

REACTIONS (3)
  - Nonreassuring foetal heart rate pattern [Unknown]
  - Foetal exposure during pregnancy [Unknown]
  - Foetal heart rate deceleration abnormality [Unknown]
